FAERS Safety Report 12094795 (Version 2)
Quarter: 2016Q1

REPORT INFORMATION
  Report Type: Spontaneous
  Country: DK (occurrence: FI)
  Receive Date: 20160219
  Receipt Date: 20160224
  Transmission Date: 20160526
  Serious: Yes (Other)
  Sender: FDA-Public Use
  Company Number: FI-FRI-1000082667

PATIENT
  Sex: Female

DRUGS (1)
  1. ESCITALOPRAM [Suspect]
     Active Substance: ESCITALOPRAM OXALATE
     Indication: DEPRESSION
     Dosage: 7.5 MG
     Route: 048
     Dates: start: 201410, end: 20160215

REACTIONS (2)
  - Pregnancy [Unknown]
  - Haemorrhage in pregnancy [Not Recovered/Not Resolved]
